FAERS Safety Report 17147702 (Version 3)
Quarter: 2022Q1

REPORT INFORMATION
  Report Type: Spontaneous
  Country: US (occurrence: US)
  Receive Date: 20191212
  Receipt Date: 20220316
  Transmission Date: 20220424
  Serious: No
  Sender: FDA-Public Use
  Company Number: US-TEVA-2019-US-1151780

PATIENT
  Age: 44 Year
  Sex: Female

DRUGS (4)
  1. DOCETAXEL [Suspect]
     Active Substance: DOCETAXEL
     Indication: Breast cancer female
     Dosage: NUMBER OF CYCLE- 06, EVERY THREE WEEKS WITH 75 MG/M2
     Route: 065
     Dates: start: 20131007, end: 20140125
  2. PERJETA [Concomitant]
     Active Substance: PERTUZUMAB
     Indication: Breast cancer female
     Dosage: NUMBER OF CYCLE- 06, EVERY THREE WEEKS
     Route: 065
     Dates: start: 20131007, end: 20140125
  3. HERCEPTIN [Concomitant]
     Active Substance: TRASTUZUMAB
     Indication: Breast cancer female
     Dosage: NUMBER OF CYCLE- 06, EVERY THREE WEEKS
     Route: 065
     Dates: start: 20131007, end: 20140125
  4. HYDROCHLOROTHIAZIDE [Concomitant]
     Active Substance: HYDROCHLOROTHIAZIDE
     Route: 065
     Dates: start: 20100101

REACTIONS (3)
  - Alopecia areata [Not Recovered/Not Resolved]
  - Hair texture abnormal [Not Recovered/Not Resolved]
  - Hair colour changes [Not Recovered/Not Resolved]

NARRATIVE: CASE EVENT DATE: 20131107
